FAERS Safety Report 19272878 (Version 1)
Quarter: 2021Q2

REPORT INFORMATION
  Report Type: Spontaneous
  Country: US (occurrence: US)
  Receive Date: 20210519
  Receipt Date: 20210519
  Transmission Date: 20210717
  Serious: No
  Sender: FDA-Public Use
  Company Number: US-BLUEPRINT MEDICINES CORPORATION-SP-US-2021-000632

PATIENT
  Age: 72 Year
  Sex: Male

DRUGS (1)
  1. AYVAKIT [Suspect]
     Active Substance: AVAPRITINIB
     Indication: GASTROINTESTINAL STROMAL TUMOUR
     Dosage: TAKE 1 TABLET BY MOUTH DAILY ON AN EMPTY STOMACH, AT LEAST 1 HOUR BEFORE AND 2 HOURS AFTER A MEAL
     Route: 048
     Dates: start: 20200401

REACTIONS (2)
  - Hypotension [Not Recovered/Not Resolved]
  - Dialysis [Not Recovered/Not Resolved]

NARRATIVE: CASE EVENT DATE: 20210419
